FAERS Safety Report 24111324 (Version 1)
Quarter: 2024Q3

REPORT INFORMATION
  Report Type: Spontaneous
  Country: US (occurrence: US)
  Receive Date: 20240718
  Receipt Date: 20240718
  Transmission Date: 20241017
  Serious: No
  Sender: Unknown Manufacturer
  Company Number: US-ACELLA PHARMACEUTICALS, LLC-2024ALO00219

PATIENT
  Age: 69 Year
  Sex: Female

DRUGS (1)
  1. NITROFURANTOIN [Suspect]
     Active Substance: NITROFURANTOIN
     Indication: Urinary tract infection
     Dosage: 100 MG EVERY 12 HOURS
     Route: 048
     Dates: start: 20240511, end: 20240513

REACTIONS (6)
  - Rash [Not Recovered/Not Resolved]
  - Dysphonia [Not Recovered/Not Resolved]
  - Fatigue [Not Recovered/Not Resolved]
  - Chills [Not Recovered/Not Resolved]
  - Hypersensitivity [Not Recovered/Not Resolved]
  - Malaise [Not Recovered/Not Resolved]

NARRATIVE: CASE EVENT DATE: 20240512
